FAERS Safety Report 17960538 (Version 1)
Quarter: 2020Q2

REPORT INFORMATION
  Report Type: Spontaneous
  Country: FR (occurrence: FR)
  Receive Date: 20200630
  Receipt Date: 20200630
  Transmission Date: 20200714
  Serious: Yes (Hospitalization)
  Sender: FDA-Public Use
  Company Number: FR-TEVA-2020-FR-1792784

PATIENT
  Age: 92 Year
  Sex: Female

DRUGS (13)
  1. HYDROXYZINE (DICHLORHYDRATE DE) [Concomitant]
     Active Substance: HYDROXYZINE HYDROCHLORIDE
  2. TRAMADOL (CHLORHYDRATE DE) [Concomitant]
     Active Substance: TRAMADOL HYDROCHLORIDE
  3. FORLAX [Concomitant]
     Active Substance: POLYETHYLENE GLYCOL 4000
  4. TERBINAFINE. [Concomitant]
     Active Substance: TERBINAFINE
  5. TARDYFERON [Concomitant]
     Active Substance: FERROUS SULFATE
  6. AZITHROMYCINE [Suspect]
     Active Substance: AZITHROMYCIN
     Indication: COVID-19 TREATMENT
     Dosage: UNIT DOSE: 250MG,  500MG / D D1 THEN 250 MG / D
     Route: 048
     Dates: start: 20200504, end: 20200509
  7. ZOLPIDEM [Concomitant]
     Active Substance: ZOLPIDEM TARTRATE
  8. PARACETAMOL [Concomitant]
     Active Substance: ACETAMINOPHEN
  9. AUGMENTIN [Interacting]
     Active Substance: AMOXICILLIN\CLAVULANATE POTASSIUM
     Indication: PRODUCT USED FOR UNKNOWN INDICATION
     Dosage: 1 DOSAGE FORM
     Route: 048
     Dates: start: 20200430, end: 20200505
  10. FUROSEMIDE. [Concomitant]
     Active Substance: FUROSEMIDE
  11. PREVISCAN 20 MG, COMPRIME SECABLE [Interacting]
     Active Substance: FLUINDIONE
     Indication: ATRIAL FIBRILLATION
     Dosage: 20MG
     Route: 048
     Dates: start: 2017
  12. DIFFU K [Concomitant]
     Active Substance: POTASSIUM CHLORIDE
  13. LAROXYL [Concomitant]
     Active Substance: AMITRIPTYLINE HYDROCHLORIDE

REACTIONS (2)
  - Prothrombin time shortened [Recovered/Resolved]
  - Drug interaction [Unknown]

NARRATIVE: CASE EVENT DATE: 20200507
